FAERS Safety Report 6051947-4 (Version None)
Quarter: 2009Q1

REPORT INFORMATION
  Report Type: 
  Country: None (occurrence: None)
  Receive Date: 20090122
  Receipt Date: 20090122
  Transmission Date: 20090719
  Serious: Yes (Other)
  Sender: FDA-Public Use
  Company Number: None

PATIENT
  Sex: Male
  Weight: 56.6996 kg

DRUGS (4)
  1. CARVEDILOL [Suspect]
     Indication: HYPERTENSION
     Dosage: 6.25MG TWICE DAILY ORAL
     Route: 048
     Dates: start: 20081001, end: 20081231
  2. CARVEDILOL [Suspect]
     Indication: PALPITATIONS
     Dosage: 6.25MG TWICE DAILY ORAL
     Route: 048
     Dates: start: 20081001, end: 20081231
  3. COUMADIN [Concomitant]
  4. SYNTHROID [Concomitant]

REACTIONS (4)
  - BLOOD PRESSURE INCREASED [None]
  - CONDITION AGGRAVATED [None]
  - PALPITATIONS [None]
  - THERAPEUTIC RESPONSE UNEXPECTED WITH DRUG SUBSTITUTION [None]
